FAERS Safety Report 4581934-4 (Version None)
Quarter: 2005Q1

REPORT INFORMATION
  Report Type: 
  Country: None (occurrence: None)
  Receive Date: 20050214
  Receipt Date: 20020306
  Transmission Date: 20050727
  Serious: No
  Sender: FDA-Public Use
  Company Number: US-GLAXOSMITHKLINE-A0363912A

PATIENT
  Age: 11 Year
  Sex: Female

DRUGS (1)
  1. LAMICTAL [Suspect]
     Indication: EPILEPSY
     Dosage: 250MG PER DAY
     Route: 048

REACTIONS (2)
  - FLANK PAIN [None]
  - PROTEIN URINE PRESENT [None]
